FAERS Safety Report 9067326 (Version 1)
Quarter: 2013Q1

REPORT INFORMATION
  Report Type: Spontaneous
  Country: US (occurrence: US)
  Receive Date: 20130214
  Receipt Date: 20130214
  Transmission Date: 20140127
  Serious: No
  Sender: FDA-Public Use
  Company Number: US-PFIZER INC-2013055438

PATIENT
  Age: 68 Year
  Sex: Female
  Weight: 95.24 kg

DRUGS (4)
  1. ZYVOX [Suspect]
     Indication: STAPHYLOCOCCAL INFECTION
     Dosage: UNK
     Route: 048
     Dates: start: 201301
  2. VANCOMYCIN HCL [Suspect]
     Route: 042
  3. EFFEXOR [Concomitant]
     Indication: DEPRESSION
     Dosage: 225 MG, 1X/DAY
  4. WELLBUTRIN [Concomitant]
     Indication: DEPRESSION
     Dosage: 150 MG, 1X/DAY

REACTIONS (6)
  - Surgery [Unknown]
  - Weight decreased [Unknown]
  - Malaise [Unknown]
  - Vomiting [Unknown]
  - Diarrhoea [Unknown]
  - Thermal burn [Unknown]
